FAERS Safety Report 18929162 (Version 2)
Quarter: 2021Q1

REPORT INFORMATION
  Report Type: Spontaneous
  Country: JP (occurrence: JP)
  Receive Date: 20210223
  Receipt Date: 20210330
  Transmission Date: 20210420
  Serious: Yes (Death, Other)
  Sender: FDA-Public Use
  Company Number: JP-009507513-2010JPN000177J

PATIENT
  Age: 68 Year
  Sex: Female

DRUGS (1)
  1. NOXAFIL [Suspect]
     Active Substance: POSACONAZOLE
     Indication: FUSARIUM INFECTION
     Dosage: 300 MILLIGRAM, QD
     Route: 041
     Dates: start: 20200911, end: 20200925

REACTIONS (2)
  - Blood creatinine increased [Recovered/Resolved]
  - Thrombotic microangiopathy [Fatal]

NARRATIVE: CASE EVENT DATE: 202009
